FAERS Safety Report 8335231-1 (Version None)
Quarter: 2012Q2

REPORT INFORMATION
  Report Type: 
  Country: None (occurrence: None)
  Receive Date: 20120503
  Receipt Date: 20120426
  Transmission Date: 20120825
  Serious: Yes (Hospitalization)
  Sender: FDA-Public Use
  Company Number: FR-NOVOPROD-348670

PATIENT
  Age: 74 Year
  Sex: Female
  Weight: 119 kg

DRUGS (7)
  1. LERCANIDIPINE [Concomitant]
     Indication: HYPERTENSION
     Dosage: 10 MG, QD
     Route: 048
     Dates: start: 20111024
  2. LIRAGLUTIDE FLEXPEN [Suspect]
     Indication: DIABETES MELLITUS
     Dosage: 1.2 MG, QD
     Route: 058
     Dates: start: 20110318
  3. RABEPRAZOLE SODIUM [Concomitant]
     Indication: ABDOMINAL PAIN UPPER
     Dosage: 10 MG, QD
     Route: 048
     Dates: start: 20110320
  4. AMARYL [Concomitant]
     Indication: DIABETES MELLITUS
     Dosage: 3 MG, QD
     Route: 058
     Dates: start: 20110318
  5. CO-APROVEL [Concomitant]
     Indication: HYPERTENSION
     Dosage: 325 MG, QD
     Route: 048
     Dates: start: 20050101
  6. METFORMIN HCL [Concomitant]
     Indication: DIABETES MELLITUS
     Dosage: 3 G, QD
     Route: 048
     Dates: start: 20000101
  7. RILMENIDINE [Concomitant]
     Indication: HYPERTENSION
     Dosage: 1 MD
     Route: 048
     Dates: start: 20050101

REACTIONS (1)
  - UTERINE POLYP [None]
